FAERS Safety Report 8521573-3 (Version None)
Quarter: 2012Q3

REPORT INFORMATION
  Report Type: 
  Country: None (occurrence: None)
  Receive Date: 20120719
  Receipt Date: 20120716
  Transmission Date: 20120928
  Serious: Yes (Death, Hospitalization)
  Sender: FDA-Public Use
  Company Number: PHEH2012US010725

PATIENT
  Sex: Female
  Weight: 90.703 kg

DRUGS (1)
  1. GLEEVEC [Suspect]
     Indication: CHRONIC MYELOID LEUKAEMIA
     Dosage: 400 MG, DAILY
     Route: 048
     Dates: start: 20090414, end: 20120202

REACTIONS (10)
  - RENAL FAILURE ACUTE [None]
  - VOMITING [None]
  - PYREXIA [None]
  - BLAST CRISIS IN MYELOGENOUS LEUKAEMIA [None]
  - CARDIOPULMONARY FAILURE [None]
  - METABOLIC ACIDOSIS [None]
  - MENTAL STATUS CHANGES [None]
  - NAUSEA [None]
  - HYPOXIA [None]
  - CHILLS [None]
